FAERS Safety Report 16815770 (Version 2)
Quarter: 2024Q1

REPORT INFORMATION
  Report Type: Spontaneous
  Country: US (occurrence: US)
  Receive Date: 20190917
  Receipt Date: 20240215
  Transmission Date: 20240409
  Serious: Yes (Other)
  Sender: FDA-Public Use
  Company Number: US-GSKCCFUS-CASE-00398680

PATIENT
  Age: 54 Year
  Sex: Female

DRUGS (6)
  1. BELIMUMAB [Suspect]
     Active Substance: BELIMUMAB
     Indication: Systemic lupus erythematosus
     Dosage: 200 MG, WE
     Dates: start: 2017
  2. BENLYSTA [Suspect]
     Active Substance: BELIMUMAB
     Indication: Systemic lupus erythematosus
     Dosage: 200 MG, WE
     Route: 058
     Dates: start: 2017
  3. BENLYSTA [Suspect]
     Active Substance: BELIMUMAB
  4. IMURAN [Suspect]
     Active Substance: AZATHIOPRINE
     Indication: Product used for unknown indication
     Dosage: UNK
  5. PLAQUENIL [Suspect]
     Active Substance: HYDROXYCHLOROQUINE SULFATE
     Indication: Product used for unknown indication
     Dosage: UNK
  6. ACTHAR [Suspect]
     Active Substance: CORTICOTROPIN
     Indication: Product used for unknown indication
     Dosage: UNK

REACTIONS (15)
  - Systemic lupus erythematosus [Not Recovered/Not Resolved]
  - Influenza [Unknown]
  - Painful respiration [Unknown]
  - Arthralgia [Unknown]
  - Myalgia [Unknown]
  - Pharyngeal swelling [Unknown]
  - Aphonia [Unknown]
  - Feeling abnormal [Unknown]
  - Photosensitivity reaction [Unknown]
  - Malaise [Unknown]
  - Brain fog [Unknown]
  - Inappropriate schedule of product administration [Unknown]
  - Product dose omission issue [Unknown]
  - Stress [Unknown]
  - Therapeutic product effect incomplete [Unknown]

NARRATIVE: CASE EVENT DATE: 20190901
